FAERS Safety Report 6876574-8 (Version None)
Quarter: 2010Q3

REPORT INFORMATION
  Report Type: 
  Country: None (occurrence: None)
  Receive Date: 20100727
  Receipt Date: 20100719
  Transmission Date: 20110219
  Serious: No
  Sender: FDA-Public Use
  Company Number: US-CEPHALON-2010003813

PATIENT
  Sex: Female

DRUGS (3)
  1. FENTORA [Suspect]
     Indication: SYSTEMIC LUPUS ERYTHEMATOSUS
     Route: 002
  2. FENTANYL CITRATE [Suspect]
     Indication: SYSTEMIC LUPUS ERYTHEMATOSUS
     Route: 002
  3. OXYCONTIN [Concomitant]

REACTIONS (1)
  - DRUG PRESCRIBING ERROR [None]
